FAERS Safety Report 22039835 (Version 5)
Quarter: 2023Q2

REPORT INFORMATION
  Report Type: Report from Study
  Country: FR (occurrence: FR)
  Receive Date: 20230227
  Receipt Date: 20230523
  Transmission Date: 20230721
  Serious: Yes (Hospitalization)
  Sender: FDA-Public Use
  Company Number: FR-PHARMAMAR-2023PM000111

PATIENT

DRUGS (11)
  1. LURBINECTEDIN [Suspect]
     Active Substance: LURBINECTEDIN
     Indication: Soft tissue sarcoma
     Dosage: 2 MILLIGRAM/SQ. METER, D1Q3W
     Route: 042
     Dates: start: 20230208, end: 20230208
  2. IRINOTECAN [Suspect]
     Active Substance: IRINOTECAN
     Indication: Soft tissue sarcoma
     Dosage: 75 MILLIGRAM/SQ. METER, D1Q3W
     Route: 042
     Dates: start: 20230208, end: 20230208
  3. DEXAMETHASONE [Concomitant]
     Active Substance: DEXAMETHASONE
     Indication: Prophylaxis of nausea and vomiting
     Dosage: 8 MILLIGRAM
     Route: 042
     Dates: start: 20230208, end: 20230208
  4. ONDANSETRON [Concomitant]
     Active Substance: ONDANSETRON
     Indication: Prophylaxis of nausea and vomiting
     Dosage: 8 MILLIGRAM
     Route: 042
     Dates: start: 20230208, end: 20230208
  5. LEVOTHYROXINE [Concomitant]
     Active Substance: LEVOTHYROXINE
     Indication: Hypothyroidism
     Dosage: UNK
     Dates: start: 20220906
  6. ESOMEPRAZOLE [Concomitant]
     Active Substance: ESOMEPRAZOLE
     Indication: Abdominal pain upper
     Dosage: UNK
     Dates: start: 20230109
  7. AMOXICILLIN [Concomitant]
     Active Substance: AMOXICILLIN
     Indication: Cough
     Dosage: 1 GRAM, TID
     Dates: start: 20230125, end: 20230130
  8. PRIMPERAN [Concomitant]
     Active Substance: METOCLOPRAMIDE HYDROCHLORIDE
     Indication: Dyspnoea
     Dosage: 40 MILLIGRAM, QD
     Route: 048
     Dates: start: 20230130, end: 20230201
  9. PRIMPERAN [Concomitant]
     Active Substance: METOCLOPRAMIDE HYDROCHLORIDE
     Dosage: 10 MILLIGRAM, QD
     Route: 048
     Dates: start: 20230209, end: 20230214
  10. FILGRASTIM [Concomitant]
     Active Substance: FILGRASTIM
     Indication: Dyspnoea
     Dosage: 40 MILLIGRAM, QD
     Route: 048
     Dates: start: 20230130, end: 20230201
  11. FILGRASTIM [Concomitant]
     Active Substance: FILGRASTIM
     Dosage: UNK
     Dates: start: 20230209, end: 20230214

REACTIONS (5)
  - Pneumothorax [Recovered/Resolved]
  - Febrile neutropenia [Recovered/Resolved]
  - Lymphopenia [Recovered/Resolved]
  - Thrombocytopenia [Recovered/Resolved]
  - Herpes zoster [Recovered/Resolved]

NARRATIVE: CASE EVENT DATE: 20230214
